FAERS Safety Report 4667232-9 (Version None)
Quarter: 2005Q2

REPORT INFORMATION
  Report Type: 
  Country: None (occurrence: None)
  Receive Date: 20050520
  Receipt Date: 20050113
  Transmission Date: 20051028
  Serious: Yes (Hospitalization)
  Sender: FDA-Public Use
  Company Number: US-BRISTOL-MYERS SQUIBB COMPANY-12833828

PATIENT

DRUGS (2)
  1. SINEMET CR [Suspect]
     Route: 048
  2. SINEMET [Suspect]
     Route: 048

REACTIONS (1)
  - MEDICATION ERROR [None]
